FAERS Safety Report 4739749-X (Version None)
Quarter: 2005Q3

REPORT INFORMATION
  Report Type: 
  Country: None (occurrence: None)
  Receive Date: 20050810
  Receipt Date: 20050509
  Transmission Date: 20060218
  Serious: No
  Sender: FDA-Public Use
  Company Number: US-GLAXOSMITHKLINE-A0557762A

PATIENT
  Age: 58 Year
  Sex: Male

DRUGS (5)
  1. PAXIL [Suspect]
     Indication: DEPRESSION
     Dosage: 20MG PER DAY
     Route: 048
     Dates: start: 19980101, end: 20050301
  2. WELLBUTRIN [Suspect]
     Indication: DEPRESSION
     Dosage: 300MG AT NIGHT
     Route: 048
     Dates: start: 20050301
  3. CRESTOR [Concomitant]
  4. ASPIRIN [Concomitant]
  5. METOPROLOL [Concomitant]

REACTIONS (4)
  - DRUG INEFFECTIVE [None]
  - INSOMNIA [None]
  - LIBIDO DECREASED [None]
  - LIBIDO INCREASED [None]
